FAERS Safety Report 6413494-7 (Version None)
Quarter: 2009Q4

REPORT INFORMATION
  Report Type: 
  Country: None (occurrence: None)
  Receive Date: 20091026
  Receipt Date: 20091016
  Transmission Date: 20100525
  Serious: Yes (Other)
  Sender: FDA-Public Use
  Company Number: PHEH2009US10534

PATIENT
  Sex: Female

DRUGS (1)
  1. FEMARA [Suspect]
     Dosage: 2.5 MG, DAILY
     Route: 048
     Dates: start: 20090804, end: 20091001

REACTIONS (6)
  - DIZZINESS [None]
  - FATIGUE [None]
  - HOT FLUSH [None]
  - MUSCLE SPASMS [None]
  - MYALGIA [None]
  - SYNCOPE [None]
